FAERS Safety Report 7806750-9 (Version None)
Quarter: 2011Q4

REPORT INFORMATION
  Report Type: 
  Country: None (occurrence: None)
  Receive Date: 20111011
  Receipt Date: 20090518
  Transmission Date: 20120403
  Serious: Yes (Other)
  Sender: FDA-Public Use
  Company Number: DE-BAYER-200921349GPV

PATIENT
  Age: 62 Year
  Sex: Male
  Weight: 90 kg

DRUGS (1)
  1. BETAFERON [Suspect]
     Indication: NECROSIS
     Dosage: UNK
     Dates: start: 19980101, end: 20090401

REACTIONS (11)
  - SKIN DISCOLOURATION [None]
  - RAYNAUD'S PHENOMENON [None]
  - SCLERODERMA [None]
  - PERIPHERAL VASCULAR DISORDER [None]
  - PERIPHERAL COLDNESS [None]
  - NECROSIS [None]
  - DYSPHAGIA [None]
  - MYALGIA [None]
  - ULCER [None]
  - SCLERODACTYLIA [None]
  - ANTINUCLEAR ANTIBODY INCREASED [None]
